FAERS Safety Report 20520589 (Version 2)
Quarter: 2022Q1

REPORT INFORMATION
  Report Type: Spontaneous
  Country: US (occurrence: None)
  Receive Date: 20220225
  Receipt Date: 20220325
  Transmission Date: 20220423
  Serious: No
  Sender: FDA-Public Use
  Company Number: 2022A064925

PATIENT
  Sex: Male
  Weight: 98 kg

DRUGS (2)
  1. SYMBICORT [Suspect]
     Active Substance: BUDESONIDE\FORMOTEROL FUMARATE DIHYDRATE
     Indication: Cardiac operation
     Dosage: 80/4.5 MCG, 2 PUFFS, TWICE DAILY
     Route: 055
  2. SYMBICORT [Suspect]
     Active Substance: BUDESONIDE\FORMOTEROL FUMARATE DIHYDRATE
     Indication: Chest discomfort
     Dosage: 80/4.5 MCG, 2 PUFFS, TWICE DAILY
     Route: 055

REACTIONS (3)
  - Glaucoma [Unknown]
  - Wrong technique in device usage process [Unknown]
  - Device use issue [Unknown]
